FAERS Safety Report 6209482-6 (Version None)
Quarter: 2009Q2

REPORT INFORMATION
  Report Type: 
  Country: None (occurrence: None)
  Receive Date: 20090601
  Receipt Date: 20081113
  Transmission Date: 20091009
  Serious: No
  Sender: FDA-Public Use
  Company Number: A0757300A

PATIENT
  Age: 1 Year
  Sex: Male

DRUGS (1)
  1. AMOXICILLIN AND CLAVULANATE POTASSIUM [Suspect]
     Dosage: 4ML TWICE PER DAY
     Route: 048
     Dates: start: 20081107, end: 20081109

REACTIONS (2)
  - DIARRHOEA [None]
  - VOMITING [None]
